FAERS Safety Report 10071617 (Version 1)
Quarter: 2014Q2

REPORT INFORMATION
  Report Type: Spontaneous
  Country: FR (occurrence: FR)
  Receive Date: 20140410
  Receipt Date: 20140410
  Transmission Date: 20141212
  Serious: Yes (Hospitalization, Other)
  Sender: FDA-Public Use
  Company Number: FR-BRISTOL-MYERS SQUIBB COMPANY-20595914

PATIENT
  Age: 55 Year
  Sex: Male

DRUGS (6)
  1. COUMADINE [Suspect]
     Indication: ATRIAL FIBRILLATION
     Route: 048
  2. RAMIPRIL [Concomitant]
  3. FLUDEX [Concomitant]
  4. SELOKEN [Concomitant]
  5. TAHOR [Concomitant]
  6. KAYEXALATE [Concomitant]

REACTIONS (3)
  - Cerebral infarction [Recovered/Resolved]
  - Rectal haemorrhage [Recovered/Resolved]
  - Overdose [Unknown]
